FAERS Safety Report 10471104 (Version 1)
Quarter: 2014Q3

REPORT INFORMATION
  Report Type: Spontaneous
  Country: US (occurrence: None)
  Receive Date: 20140917
  Receipt Date: 20140917
  Transmission Date: 20150326
  Serious: No
  Sender: FDA-Public Use
  Company Number: 2014CT000067

PATIENT
  Age: 72 Year
  Sex: Female
  Weight: 82.56 kg

DRUGS (9)
  1. SERTRALINE [Concomitant]
     Active Substance: SERTRALINE HYDROCHLORIDE
  2. VITAMIN D3 [Concomitant]
     Active Substance: CHOLECALCIFEROL
  3. KORLYM [Suspect]
     Active Substance: MIFEPRISTONE
     Indication: HYPERCORTICOIDISM
     Route: 048
     Dates: start: 201404, end: 201406
  4. TRAZODONE [Concomitant]
     Active Substance: TRAZODONE HYDROCHLORIDE
  5. ZYRTEC [Concomitant]
     Active Substance: CETIRIZINE HYDROCHLORIDE
  6. VESICARE [Concomitant]
     Active Substance: SOLIFENACIN SUCCINATE
  7. STRATTERA [Concomitant]
     Active Substance: ATOMOXETINE HYDROCHLORIDE
  8. LEVOTHYROXINE [Concomitant]
     Active Substance: LEVOTHYROXINE
  9. DEXILANT [Concomitant]
     Active Substance: DEXLANSOPRAZOLE

REACTIONS (4)
  - Dizziness [None]
  - Nausea [None]
  - Dry mouth [None]
  - Syncope [None]

NARRATIVE: CASE EVENT DATE: 201405
